FAERS Safety Report 24534558 (Version 1)
Quarter: 2024Q4

REPORT INFORMATION
  Report Type: Spontaneous
  Country: IN (occurrence: IN)
  Receive Date: 20241022
  Receipt Date: 20241022
  Transmission Date: 20250114
  Serious: Yes (Hospitalization)
  Sender: NIVAGEN PHARMACEUTICALS INC
  Company Number: IN-NPI-000045

PATIENT
  Age: 53 Year
  Sex: Female

DRUGS (2)
  1. BEVACIZUMAB [Suspect]
     Active Substance: BEVACIZUMAB
     Indication: Solitary fibrous tumour
     Dosage: 11 CYCLES OF BEVACIZUMAB WERE GIVEN
     Route: 065
  2. TEMOZOLOMIDE [Suspect]
     Active Substance: TEMOZOLOMIDE
     Indication: Solitary fibrous tumour
     Dosage: 11 CYCLES OF TEMOZOLOMIDE WERE GIVEN
     Route: 065

REACTIONS (4)
  - Drug ineffective [Unknown]
  - Neoplasm progression [Unknown]
  - Solitary fibrous tumour [Unknown]
  - Fibroadenoma of breast [Unknown]
